FAERS Safety Report 9399844 (Version 1)
Quarter: 2013Q3

REPORT INFORMATION
  Report Type: Spontaneous
  Country: IN (occurrence: IN)
  Receive Date: 20130715
  Receipt Date: 20130715
  Transmission Date: 20140515
  Serious: Yes (Death, Congenital Anomaly, Other)
  Sender: FDA-Public Use
  Company Number: PHHY2013IN074395

PATIENT
  Sex: Male

DRUGS (1)
  1. IMATINIB [Suspect]
     Dosage: 400 MG (MATERNAL DOSE)
     Route: 064

REACTIONS (4)
  - Death neonatal [Fatal]
  - Anal atresia [Unknown]
  - Premature baby [Unknown]
  - Foetal exposure during pregnancy [Unknown]
